FAERS Safety Report 7540151-6 (Version None)
Quarter: 2011Q2

REPORT INFORMATION
  Report Type: 
  Country: None (occurrence: None)
  Receive Date: 20110610
  Receipt Date: 20110601
  Transmission Date: 20111010
  Serious: Yes (Hospitalization, Other)
  Sender: FDA-Public Use
  Company Number: US-BAYER-2011-011245

PATIENT
  Age: 48 Year
  Sex: Female
  Weight: 61.224 kg

DRUGS (2)
  1. YASMIN [Suspect]
     Indication: ACNE
     Dosage: UNK
     Route: 048
     Dates: start: 20021001, end: 20031001
  2. IBUPROFEN [Concomitant]
     Dosage: UNK UNK, PRN

REACTIONS (3)
  - INJURY [None]
  - PULMONARY EMBOLISM [None]
  - PAIN [None]
